FAERS Safety Report 10832854 (Version 1)
Quarter: 2015Q1

REPORT INFORMATION
  Report Type: Report from Study
  Country: US (occurrence: US)
  Receive Date: 20150219
  Receipt Date: 20150219
  Transmission Date: 20150721
  Serious: No
  Sender: FDA-Public Use
  Company Number: US-ABBVIE-14P-163-1200806-00

PATIENT
  Age: 54 Year
  Sex: Female
  Weight: 45.4 kg

DRUGS (2)
  1. METOPROLOL [Concomitant]
     Active Substance: METOPROLOL
     Indication: HEART RATE INCREASED
  2. HUMIRA [Suspect]
     Active Substance: ADALIMUMAB
     Indication: CROHN^S DISEASE
     Route: 058
     Dates: start: 201308, end: 20131227

REACTIONS (6)
  - Rash pruritic [Recovering/Resolving]
  - Rash papular [Recovered/Resolved]
  - Hypersensitivity [Unknown]
  - Dry skin [Recovering/Resolving]
  - Pruritus [Recovering/Resolving]
  - Adverse drug reaction [Recovering/Resolving]

NARRATIVE: CASE EVENT DATE: 201312
